FAERS Safety Report 17098085 (Version 3)
Quarter: 2020Q1

REPORT INFORMATION
  Report Type: Spontaneous
  Country: IN (occurrence: IN)
  Receive Date: 20191202
  Receipt Date: 20200324
  Transmission Date: 20200409
  Serious: Yes (Other)
  Sender: FDA-Public Use
  Company Number: IN-PFIZER INC-2018534029

PATIENT
  Age: 59 Year
  Sex: Male
  Weight: 80 kg

DRUGS (3)
  1. SUTENT [Suspect]
     Active Substance: SUNITINIB MALATE
     Dosage: 37.5 MG, CYCLIC (3 WEEKS ON 1 WEEK OFF)
     Route: 048
  2. SUTENT [Suspect]
     Active Substance: SUNITINIB MALATE
     Indication: GASTROINTESTINAL STROMAL TUMOUR
     Dosage: 50 MG, CYCLIC(ONCE A DAY, TWO WEEKS ON AND ONE WEEK OFF)
     Route: 048
     Dates: start: 20181227
  3. SUTENT [Suspect]
     Active Substance: SUNITINIB MALATE
     Dosage: 37.5 MG, EVERY 3 MONTHS
     Route: 048

REACTIONS (11)
  - Taste disorder [Unknown]
  - Wound infection pseudomonas [Unknown]
  - Furuncle [Unknown]
  - Purulent discharge [Not Recovered/Not Resolved]
  - Scab [Unknown]
  - Asthenia [Recovering/Resolving]
  - Gait disturbance [Unknown]
  - Dermatitis contact [Unknown]
  - Diarrhoea [Unknown]
  - Neoplasm progression [Unknown]
  - Mouth ulceration [Recovering/Resolving]

NARRATIVE: CASE EVENT DATE: 20191104
